FAERS Safety Report 8887250 (Version 1)
Quarter: 2012Q4

REPORT INFORMATION
  Report Type: Report from Study
  Country: US (occurrence: US)
  Receive Date: 20121101
  Receipt Date: 20121101
  Transmission Date: 20130627
  Serious: Yes (Other)
  Sender: FDA-Public Use
  Company Number: US-ROCHE-1149384

PATIENT
  Age: 87 Year
  Sex: Female

DRUGS (2)
  1. RANIBIZUMAB [Suspect]
     Indication: AGE-RELATED MACULAR DEGENERATION
     Dosage: drug onset date was /Nov/2010
     Route: 065
     Dates: end: 201206
  2. RANIBIZUMAB [Suspect]
     Indication: AGE-RELATED MACULAR DEGENERATION
     Route: 065

REACTIONS (8)
  - Blindness [Unknown]
  - Eye haemorrhage [Unknown]
  - Injection site pain [Unknown]
  - Eye irritation [Unknown]
  - Nausea [Unknown]
  - Dizziness [Unknown]
  - Eye disorder [Unknown]
  - Drug ineffective [Unknown]
